FAERS Safety Report 5705491-1 (Version None)
Quarter: 2008Q2

REPORT INFORMATION
  Report Type: 
  Country: None (occurrence: None)
  Receive Date: 20080411
  Receipt Date: 20080403
  Transmission Date: 20081010
  Serious: Yes (Life-Threatening, Other)
  Sender: FDA-Public Use
  Company Number: 2008SP006544

PATIENT
  Age: 65 Year
  Sex: Female

DRUGS (18)
  1. NOXAFIL [Suspect]
     Indication: LUNG TRANSPLANT
     Dosage: 400 MG; BID; PO
     Route: 048
  2. PROGRAF [Suspect]
     Indication: LUNG TRANSPLANT
     Dosage: 2 MG; BID; PO
     Route: 048
     Dates: start: 20080307
  3. FLAGYL [Suspect]
     Indication: DRUG USE FOR UNKNOWN INDICATION
     Dosage: 500 MG; TID
     Dates: start: 20080306
  4. CELLCEPT [Suspect]
     Indication: DRUG USE FOR UNKNOWN INDICATION
     Dosage: 0.5 MG; BID; PO
     Route: 048
  5. INSULIN [Concomitant]
  6. OXAZEPAM [Concomitant]
  7. DAFALGAN /00020001/ [Concomitant]
  8. CASPOFUNGIN [Concomitant]
  9. POTASSIUM CHLORIDE [Concomitant]
  10. LIQUAEMIN INJ [Concomitant]
  11. RECORMON /00928301/ [Concomitant]
  12. ALBUMIN (HUMAN) [Concomitant]
  13. FOLVITE [Concomitant]
  14. NEXIUM [Concomitant]
  15. NEPHROTRANS [Concomitant]
  16. WELLVONE [Concomitant]
  17. PREDNISOLON /00016201/ [Concomitant]
  18. TORSEMIDE [Concomitant]

REACTIONS (5)
  - CONVULSION [None]
  - GRAND MAL CONVULSION [None]
  - NEUTROPENIA [None]
  - PARTIAL SEIZURES [None]
  - THROMBOCYTOPENIA [None]
